FAERS Safety Report 10682363 (Version 1)
Quarter: 2014Q4

REPORT INFORMATION
  Report Type: Spontaneous
  Country: BR (occurrence: BR)
  Receive Date: 20141230
  Receipt Date: 20141230
  Transmission Date: 20150529
  Serious: Yes (Other)
  Sender: FDA-Public Use
  Company Number: BR-ABBOTT-14X-020-1197632-00

PATIENT
  Age: 70 Year
  Sex: Female
  Weight: 70 kg

DRUGS (7)
  1. ZOLPIDEM TARTRATE. [Concomitant]
     Active Substance: ZOLPIDEM TARTRATE
     Indication: SEDATIVE THERAPY
     Dosage: DAILY DOSE: 1 TABLET; AT NIGHT
     Route: 048
     Dates: start: 20141029
  2. RYTMONORM [Suspect]
     Active Substance: PROPAFENONE
     Indication: CARDIAC DISORDER
  3. LOSARTAN [Concomitant]
     Active Substance: LOSARTAN
     Indication: BLOOD PRESSURE
     Dosage: IN FASTING:DAILY DOSE: 1 TABLET
     Route: 048
     Dates: start: 201407
  4. OMEPRAZOL [Concomitant]
     Active Substance: OMEPRAZOLE
     Indication: GASTRIC DISORDER
     Dosage: IN FASTING: DAILY DOSE: 1 TABLET
     Route: 048
  5. RYTMONORM [Suspect]
     Active Substance: PROPAFENONE
     Indication: ARRHYTHMIA
     Route: 048
     Dates: start: 20141029, end: 20141111
  6. CAPTOPRIL. [Concomitant]
     Active Substance: CAPTOPRIL
     Indication: BLOOD PRESSURE
     Dosage: IN THE MORNING: DAILY DOSE: 1 TABLET
     Route: 048
     Dates: start: 2011, end: 2014
  7. DIPYRONE [Concomitant]
     Active Substance: DIPYRONE
     Indication: PAIN
     Dosage: 25 DROPS WHEN HAS PAIN
     Route: 048

REACTIONS (13)
  - Nervous system disorder [Recovering/Resolving]
  - Visual impairment [Recovering/Resolving]
  - Dry mouth [Recovered/Resolved]
  - Tremor [Recovered/Resolved]
  - Agitation [Recovering/Resolving]
  - Dizziness [Recovering/Resolving]
  - Decreased appetite [Recovered/Resolved]
  - Arrhythmia [Recovering/Resolving]
  - Liver disorder [Recovered/Resolved]
  - Insomnia [Recovering/Resolving]
  - Malaise [Recovering/Resolving]
  - Nervousness [Recovering/Resolving]
  - Headache [Recovering/Resolving]

NARRATIVE: CASE EVENT DATE: 20141030
